FAERS Safety Report 5213172-6 (Version None)
Quarter: 2007Q1

REPORT INFORMATION
  Report Type: 
  Country: None (occurrence: None)
  Receive Date: 20070119
  Receipt Date: 20070117
  Transmission Date: 20070707
  Serious: Yes (Hospitalization)
  Sender: FDA-Public Use
  Company Number: US-GLAXOSMITHKLINE-A0635988A

PATIENT
  Age: 72 Year
  Sex: Female

DRUGS (15)
  1. ADVAIR DISKUS 100/50 [Suspect]
     Indication: CHRONIC OBSTRUCTIVE PULMONARY DISEASE
     Dosage: 1PUFF TWICE PER DAY
     Route: 055
  2. SPIRONOLACTONE [Concomitant]
  3. GLIPIZIDE [Concomitant]
  4. TRICOR [Concomitant]
  5. LANOXIN [Concomitant]
  6. COREG [Concomitant]
  7. TORSEMIDE [Concomitant]
  8. POTASSIUM ACETATE [Concomitant]
  9. ENALAPRIL MALEATE [Concomitant]
  10. ASPIRIN [Concomitant]
  11. COUMADIN [Concomitant]
  12. DESYREL [Concomitant]
  13. LIPITOR [Concomitant]
  14. SPIRIVA [Concomitant]
  15. ALBUTEROL [Concomitant]

REACTIONS (3)
  - FLUID RETENTION [None]
  - MUSCULOSKELETAL CHEST PAIN [None]
  - PLEURAL DISORDER [None]
